FAERS Safety Report 6661690-6 (Version None)
Quarter: 2010Q1

REPORT INFORMATION
  Report Type: 
  Country: None (occurrence: None)
  Receive Date: 20100331
  Receipt Date: 20090415
  Transmission Date: 20100710
  Serious: No
  Sender: FDA-Public Use
  Company Number: US-BRISTOL-MYERS SQUIBB COMPANY-14591838

PATIENT
  Sex: Male

DRUGS (2)
  1. ERBITUX [Suspect]
     Indication: HEAD AND NECK CANCER
  2. RADIATION THERAPY [Suspect]
     Indication: HEAD AND NECK CANCER

REACTIONS (1)
  - RASH [None]
